FAERS Safety Report 13337710 (Version 3)
Quarter: 2017Q2

REPORT INFORMATION
  Report Type: Report from Study
  Country: US (occurrence: US)
  Receive Date: 20170315
  Receipt Date: 20170518
  Transmission Date: 20170830
  Serious: Yes (Death, Hospitalization)
  Sender: FDA-Public Use
  Company Number: US-REGENERON PHARMACEUTICALS, INC.-2017-13056

PATIENT

DRUGS (2)
  1. EYLEA [Suspect]
     Active Substance: AFLIBERCEPT
     Indication: NEOVASCULAR AGE-RELATED MACULAR DEGENERATION
     Dosage: 2/0.05ML, UNK
  2. EYLEA [Suspect]
     Active Substance: AFLIBERCEPT
     Dosage: 2.0 MG / 0.5 CC, OD, AS NEEDED
     Route: 031
     Dates: start: 20140207

REACTIONS (1)
  - Aneurysm [Fatal]
